FAERS Safety Report 8260904-9 (Version None)
Quarter: 2012Q2

REPORT INFORMATION
  Report Type: 
  Country: None (occurrence: None)
  Receive Date: 20120402
  Receipt Date: 20120322
  Transmission Date: 20120825
  Serious: No
  Sender: FDA-Public Use
  Company Number: 2012-00098

PATIENT
  Age: 67 Year
  Sex: Male

DRUGS (5)
  1. SAW PALMETTO [Concomitant]
  2. ZICAM COLD REMEDY ORAL MIST [Suspect]
     Indication: NASOPHARYNGITIS
     Dosage: 1 DOSE ORALLY
     Route: 048
     Dates: start: 20120321, end: 20120321
  3. LOVAZA [Concomitant]
  4. METFORMIN HCL [Concomitant]
  5. LANTUS [Concomitant]

REACTIONS (1)
  - AGEUSIA [None]
